FAERS Safety Report 20175310 (Version 1)
Quarter: 2021Q4

REPORT INFORMATION
  Report Type: Spontaneous
  Country: US (occurrence: None)
  Receive Date: 20211209
  Receipt Date: 20211209
  Transmission Date: 20220304
  Serious: Yes (Hospitalization)
  Sender: FDA-Public Use
  Company Number: None

PATIENT
  Sex: Male
  Weight: 100 kg

DRUGS (15)
  1. ETOPOSIDE [Suspect]
     Active Substance: ETOPOSIDE
     Indication: Diffuse large B-cell lymphoma
     Dosage: OTHER FREQUENCY : DAYS 2 AND 3/21;?
     Route: 048
  2. VITAMIN D3 [Concomitant]
     Active Substance: CHOLECALCIFEROL
  3. GABAPENTIN [Concomitant]
     Active Substance: GABAPENTIN
  4. AMARYL [Concomitant]
     Active Substance: GLIMEPIRIDE
  5. ACETAMINOPHEN\HYDROCODONE [Concomitant]
     Active Substance: ACETAMINOPHEN\HYDROCODONE
  6. LISINOPRIL [Concomitant]
     Active Substance: LISINOPRIL
  7. MAGNESIUM [Concomitant]
     Active Substance: MAGNESIUM
  8. VITAMIN B6 [Concomitant]
     Active Substance: PYRIDOXINE HYDROCHLORIDE
  9. XARELTO [Concomitant]
     Active Substance: RIVAROXABAN
  10. ALLOPURINOL [Concomitant]
     Active Substance: ALLOPURINOL
  11. ZOFRAN [Concomitant]
     Active Substance: ONDANSETRON HYDROCHLORIDE
  12. PREDNISONE [Concomitant]
     Active Substance: PREDNISONE
  13. PROCLORPERAZINE [Concomitant]
  14. TRIAMCINOLONE [Concomitant]
     Active Substance: TRIAMCINOLONE
  15. CALCIUM [Concomitant]
     Active Substance: CALCIUM

REACTIONS (1)
  - Osteomyelitis [None]
